FAERS Safety Report 18495104 (Version 1)
Quarter: 2020Q4

REPORT INFORMATION
  Report Type: Spontaneous
  Country: US (occurrence: US)
  Receive Date: 20201112
  Receipt Date: 20201112
  Transmission Date: 20210114
  Serious: No
  Sender: FDA-Public Use
  Company Number: US-BAYER-2020-239179

PATIENT
  Age: 33 Year
  Sex: Female

DRUGS (1)
  1. MIRENA [Suspect]
     Active Substance: LEVONORGESTREL
     Indication: CONTRACEPTION
     Dosage: 20 ?G PER DAY,  CONTINUOUSLY
     Route: 015
     Dates: start: 20201001, end: 20201001

REACTIONS (1)
  - Adverse event [None]

NARRATIVE: CASE EVENT DATE: 20201001
